FAERS Safety Report 8914446 (Version 3)
Quarter: 2013Q3

REPORT INFORMATION
  Report Type: Report from Study
  Country: JP (occurrence: JP)
  Receive Date: 20121117
  Receipt Date: 20130904
  Transmission Date: 20140515
  Serious: Yes (Hospitalization)
  Sender: FDA-Public Use
  Company Number: JP-VERTEX PHARMACEUTICAL INC.-AE-2012-006091

PATIENT
  Age: 47 Year
  Sex: Male

DRUGS (25)
  1. VX-950 (TELAPREVIR) [Suspect]
     Indication: CHRONIC HEPATITIS C
     Dosage: 2250 MG, QD
     Route: 048
     Dates: start: 20120131, end: 20120306
  2. VX-950 (TELAPREVIR) [Suspect]
     Dosage: 1500 MG, QD
     Route: 048
     Dates: start: 20120307, end: 20120422
  3. REBETOL [Suspect]
     Indication: CHRONIC HEPATITIS C
     Dosage: 800 MG, QD
     Route: 048
     Dates: start: 20120131, end: 20120221
  4. REBETOL [Suspect]
     Dosage: 600 MG, QD
     Route: 048
     Dates: start: 20120222, end: 20120228
  5. REBETOL [Suspect]
     Dosage: 400 MG, QD
     Route: 048
     Dates: start: 20120229, end: 20120320
  6. REBETOL [Suspect]
     Dosage: 200 MG, QD
     Route: 048
     Dates: start: 20120321, end: 20120709
  7. PEGINTRON [Suspect]
     Indication: CHRONIC HEPATITIS C
     Dosage: 1.43 ?G/KG, QW
     Route: 058
     Dates: start: 20120131, end: 20120220
  8. PEGINTRON [Suspect]
     Dosage: 1.18 ?G/KG, QW
     Route: 058
     Dates: start: 20120221, end: 20120430
  9. PEGINTRON [Suspect]
     Dosage: 0.71 ?G/KG, QW
     Route: 058
     Dates: start: 20120501, end: 20120710
  10. DOMPERIDONE [Concomitant]
     Dosage: 30 MG, QD
     Route: 048
     Dates: start: 20120131, end: 20120416
  11. LENDORMIN [Concomitant]
     Dosage: 0.125 MG, PRN
     Route: 048
     Dates: start: 20120131, end: 20120209
  12. LENDORMIN [Concomitant]
     Dosage: 0.25 MG, QD
     Route: 048
     Dates: start: 20120210
  13. LENDORMIN [Concomitant]
     Dosage: 0.25 MG, PRN
     Route: 048
     Dates: end: 20120326
  14. LOXOPROFEN [Concomitant]
     Dosage: 60 MG, PRN
     Route: 048
     Dates: start: 20120131, end: 20120710
  15. AMOBAN [Concomitant]
     Dosage: 7.5 MG, QD PRN
     Route: 048
     Dates: start: 20120213, end: 20120416
  16. CERCINE [Concomitant]
     Dosage: 16 MG, QD
     Route: 048
     Dates: start: 20120501, end: 20120507
  17. CERCINE [Concomitant]
     Dosage: 8 MG, QD
     Route: 048
     Dates: start: 20120508, end: 20120528
  18. CERCINE [Concomitant]
     Dosage: 4 MG, QD
     Route: 048
     Dates: start: 20120529, end: 20120611
  19. HORIZON [Concomitant]
     Dosage: 10 MG, PRN
     Route: 030
     Dates: start: 20120410, end: 20120423
  20. HORIZON [Concomitant]
     Dosage: 20 MG, QD
     Route: 030
     Dates: start: 20120424, end: 20120510
  21. HORIZON [Concomitant]
     Dosage: 10 MG, QD
     Route: 030
     Dates: start: 20120501, end: 20120501
  22. LANDSEN [Concomitant]
     Dosage: 1 MG, QD
     Route: 048
     Dates: end: 20120514
  23. BI SIFROL [Concomitant]
     Dosage: 10 MG, PRN
     Route: 048
     Dates: start: 20120410
  24. BI SIFROL [Concomitant]
     Dosage: 0.25 MG, QD
     Route: 048
     Dates: start: 20120417, end: 20120528
  25. BI SIFROL [Concomitant]
     Dosage: 0.125 MG, QD
     Route: 048
     Dates: start: 20120529, end: 20120611

REACTIONS (1)
  - Feeling abnormal [Recovered/Resolved]
